FAERS Safety Report 18401491 (Version 1)
Quarter: 2020Q4

REPORT INFORMATION
  Report Type: Report from Study
  Country: US (occurrence: US)
  Receive Date: 20201020
  Receipt Date: 20201020
  Transmission Date: 20210114
  Serious: Yes (Congenital Anomaly, Other)
  Sender: FDA-Public Use
  Company Number: US-AUROBINDO-AUR-APL-2019-087649

PATIENT

DRUGS (6)
  1. PHENYTOIN. [Suspect]
     Active Substance: PHENYTOIN
     Indication: EPILEPSY
     Dosage: 200 MILLIGRAM
     Route: 064
  2. TOPIRAMATE. [Suspect]
     Active Substance: TOPIRAMATE
     Indication: EPILEPSY
     Dosage: 550 MILLIGRAM
     Route: 064
  3. LAMOTRIGINE. [Suspect]
     Active Substance: LAMOTRIGINE
     Indication: AFFECTIVE DISORDER
  4. LAMOTRIGINE. [Suspect]
     Active Substance: LAMOTRIGINE
     Indication: EPILEPSY
     Dosage: 300 MILLIGRAM
     Route: 064
  5. PHENYTOIN. [Suspect]
     Active Substance: PHENYTOIN
     Indication: AFFECTIVE DISORDER
  6. TOPIRAMATE. [Suspect]
     Active Substance: TOPIRAMATE
     Indication: AFFECTIVE DISORDER

REACTIONS (3)
  - Congenital spinal cord anomaly [Unknown]
  - Congenital dermal sinus [Unknown]
  - Foetal exposure during pregnancy [Unknown]
